FAERS Safety Report 13496384 (Version 1)
Quarter: 2017Q2

REPORT INFORMATION
  Report Type: Spontaneous
  Country: US (occurrence: US)
  Receive Date: 20170428
  Receipt Date: 20170428
  Transmission Date: 20170830
  Serious: No
  Sender: FDA-Public Use
  Company Number: None

PATIENT
  Age: 48 Year
  Sex: Female
  Weight: 95.3 kg

DRUGS (13)
  1. PALBOCICLIB [Concomitant]
     Active Substance: PALBOCICLIB
  2. LEVOFLOXACIN. [Suspect]
     Active Substance: LEVOFLOXACIN
     Indication: UPPER RESPIRATORY TRACT INFECTION
     Route: 048
     Dates: start: 20170117, end: 20170126
  3. BUPROPION. [Concomitant]
     Active Substance: BUPROPION
  4. VITAMIN D3 [Concomitant]
     Active Substance: CHOLECALCIFEROL
  5. LETROZOLE. [Concomitant]
     Active Substance: LETROZOLE
  6. CETIRIZINE [Concomitant]
     Active Substance: CETIRIZINE HYDROCHLORIDE
  7. MELATONIN [Concomitant]
     Active Substance: MELATONIN
  8. CALCIUM CARBONATE. [Concomitant]
     Active Substance: CALCIUM CARBONATE
  9. VITAMIN C [Concomitant]
     Active Substance: ASCORBIC ACID
  10. ASPIRIN. [Concomitant]
     Active Substance: ASPIRIN
  11. CLONAZEPAM. [Concomitant]
     Active Substance: CLONAZEPAM
  12. VITAMIN B12 [Concomitant]
     Active Substance: CYANOCOBALAMIN
  13. MAGNESIUM CARBONATE [Concomitant]
     Active Substance: MAGNESIUM CARBONATE

REACTIONS (4)
  - Drug effect incomplete [None]
  - Gait disturbance [None]
  - Myalgia [None]
  - Movement disorder [None]

NARRATIVE: CASE EVENT DATE: 20170117
